FAERS Safety Report 19955694 (Version 1)
Quarter: 2021Q4

REPORT INFORMATION
  Report Type: Spontaneous
  Country: FR (occurrence: FR)
  Receive Date: 20211013
  Receipt Date: 20211013
  Transmission Date: 20220303
  Serious: Yes (Hospitalization)
  Sender: FDA-Public Use
  Company Number: FR-AFSSAPS-CN20213002

PATIENT
  Age: 30 Year
  Sex: Female
  Weight: 56 kg

DRUGS (6)
  1. ACETAMINOPHEN [Suspect]
     Active Substance: ACETAMINOPHEN
     Indication: Intentional overdose
     Dosage: 4 GRAM, UNK
     Route: 048
     Dates: start: 20210916, end: 20210916
  2. ACETAMINOPHEN [Suspect]
     Active Substance: ACETAMINOPHEN
     Dosage: 4 GRAM, UNK
     Route: 048
     Dates: start: 20210917, end: 20210917
  3. PRAZEPAM [Suspect]
     Active Substance: PRAZEPAM
     Indication: Intentional overdose
     Dosage: 600 MILLIGRAM, UNK
     Route: 048
     Dates: start: 20210916, end: 20210916
  4. PRAZEPAM [Suspect]
     Active Substance: PRAZEPAM
     Dosage: 200 MILLIGRAM, UNK
     Route: 048
     Dates: start: 20210917, end: 20210917
  5. VENLAFAXINE ABBOTT 75 mg, comprime a liberation prolongee [Concomitant]
     Indication: Depression
     Dosage: 225 MILLIGRAM, DAILY, 75MG1-1-1
     Route: 048
  6. QUETIAPINE [Concomitant]
     Active Substance: QUETIAPINE
     Indication: Depression
     Dosage: 300 MILLIGRAM, DAILY
     Route: 048

REACTIONS (2)
  - Coma [Recovered/Resolved]
  - Intentional overdose [Recovered/Resolved]

NARRATIVE: CASE EVENT DATE: 20210916
